FAERS Safety Report 18716134 (Version 1)
Quarter: 2021Q1

REPORT INFORMATION
  Report Type: Spontaneous
  Country: US (occurrence: US)
  Receive Date: 20210107
  Receipt Date: 20210107
  Transmission Date: 20210419
  Serious: No
  Sender: FDA-Public Use
  Company Number: None

PATIENT
  Age: 52 Year
  Sex: Female
  Weight: 108 kg

DRUGS (1)
  1. BAMLANIVIMAB. [Suspect]
     Active Substance: BAMLANIVIMAB
     Indication: COVID-19
     Dates: start: 20210107, end: 20210107

REACTIONS (6)
  - Infusion site irritation [None]
  - Hypoaesthesia oral [None]
  - Paraesthesia oral [None]
  - Dyspnoea [None]
  - Infusion site erythema [None]
  - Sensation of foreign body [None]

NARRATIVE: CASE EVENT DATE: 20210107
